FAERS Safety Report 18604000 (Version 1)
Quarter: 2020Q4

REPORT INFORMATION
  Report Type: Spontaneous
  Country: US (occurrence: US)
  Receive Date: 20201211
  Receipt Date: 20201211
  Transmission Date: 20210114
  Serious: No
  Sender: FDA-Public Use
  Company Number: US-009507513-2011USA009537

PATIENT
  Age: 44 Year
  Sex: Male

DRUGS (3)
  1. TEMODAR [Suspect]
     Active Substance: TEMOZOLOMIDE
     Indication: GLIOBLASTOMA
     Dosage: 75 MG/M2 ONCE PER DAY
     Route: 048
  2. TEMODAR [Suspect]
     Active Substance: TEMOZOLOMIDE
     Dosage: 150 MG/M2,  FIRST CYCLE
     Route: 048
  3. TEMODAR [Suspect]
     Active Substance: TEMOZOLOMIDE
     Dosage: 8 CYCLES AT 200 MG/M2 ONCE PER DAY ON A 5-DAYS-ON-23-DAYS-OFF SCHEDULE
     Route: 048

REACTIONS (1)
  - Inappropriate schedule of product administration [Unknown]
